FAERS Safety Report 8958628 (Version 1)
Quarter: 2012Q4

REPORT INFORMATION
  Report Type: Spontaneous
  Country: US (occurrence: None)
  Receive Date: 20121203
  Receipt Date: 20121203
  Transmission Date: 20130627
  Serious: Yes (Death, Life-Threatening, Hospitalization)
  Sender: FDA-Public Use
  Company Number: 2012-05324

PATIENT

DRUGS (4)
  1. ACETAMINOPHEN [Suspect]
     Indication: TOOTH PAIN
     Dosage: 12 tablets
     Route: 064
  2. ACETAMINOPHEN [Suspect]
     Indication: DENTAL DISCOMFORT
     Dosage: 12 tablets
     Route: 064
  3. TYLENOL W/CODEINE NO. 3 [Suspect]
     Indication: TOOTH PAIN
     Dosage: 6-8 tablets /day for 10-14 days
     Route: 064
  4. TYLENOL W/CODEINE NO. 3 [Suspect]
     Indication: DENTAL DISCOMFORT
     Dosage: 6-8 tablets /day for 10-14 days
     Route: 064

REACTIONS (9)
  - Stillbirth [None]
  - Periventricular leukomalacia [None]
  - Cerebral haemorrhage foetal [None]
  - Intraventricular haemorrhage [None]
  - Maternal drugs affecting foetus [None]
  - Abortion induced [None]
  - Hydrops foetalis [None]
  - Cerebral ventricle dilatation [None]
  - Brain injury [None]
